FAERS Safety Report 11807307 (Version 2)
Quarter: 2018Q2

REPORT INFORMATION
  Report Type: Spontaneous
  Country: IT (occurrence: IT)
  Receive Date: 20151207
  Receipt Date: 20180420
  Transmission Date: 20180711
  Serious: Yes (Hospitalization, Other)
  Sender: FDA-Public Use
  Company Number: IT-TEVA-616069ISR

PATIENT
  Age: 59 Month

DRUGS (5)
  1. VALPROATE [Concomitant]
     Active Substance: VALPROIC ACID
     Indication: EPILEPSY
     Dosage: UP TO 60 MG/KG PER DAY
  2. FUROSEMIDE. [Suspect]
     Active Substance: FUROSEMIDE
     Route: 065
  3. INSULIN [Suspect]
     Active Substance: INSULIN NOS
     Route: 058
  4. GLIBENCLAMIDE [Suspect]
     Active Substance: GLYBURIDE
     Route: 065
  5. PROGESTERONE. [Suspect]
     Active Substance: PROGESTERONE
     Route: 065

REACTIONS (7)
  - Hirsutism [Unknown]
  - Hyperglycaemia [Unknown]
  - Hypoglycaemia [Unknown]
  - Nephrocalcinosis [Unknown]
  - Developmental delay [Unknown]
  - Metabolic alkalosis [Unknown]
  - Hypokalaemia [Unknown]
